FAERS Safety Report 17949014 (Version 1)
Quarter: 2020Q2

REPORT INFORMATION
  Report Type: Spontaneous
  Country: US (occurrence: US)
  Receive Date: 20200625
  Receipt Date: 20200625
  Transmission Date: 20200714
  Serious: No
  Sender: FDA-Public Use
  Company Number: US-ROCHE-2567231

PATIENT
  Sex: Female
  Weight: 76.27 kg

DRUGS (2)
  1. CLONAZEPAM. [Concomitant]
     Active Substance: CLONAZEPAM
  2. CLONAZEPAM. [Suspect]
     Active Substance: CLONAZEPAM
     Indication: PANIC DISORDER
     Dosage: 0.25 MG TWICE A DAY
     Route: 048

REACTIONS (8)
  - Unevaluable event [Unknown]
  - Insomnia [Unknown]
  - Off label use [Unknown]
  - Intentional product use issue [Unknown]
  - Abdominal discomfort [Unknown]
  - Fungal infection [Unknown]
  - Drug ineffective [Unknown]
  - Feeling abnormal [Unknown]
